FAERS Safety Report 14246759 (Version 1)
Quarter: 2017Q4

REPORT INFORMATION
  Report Type: Spontaneous
  Country: US (occurrence: None)
  Receive Date: 20171201
  Receipt Date: 20171201
  Transmission Date: 20180321
  Serious: Yes (Hospitalization)
  Sender: FDA-Public Use
  Company Number: None

PATIENT
  Age: 56 Year
  Sex: Male
  Weight: 72 kg

DRUGS (1)
  1. PANITUMUMAB [Suspect]
     Active Substance: PANITUMUMAB
     Indication: METASTASES TO PERITONEUM
     Dates: start: 20170327, end: 20170426

REACTIONS (6)
  - Cough [None]
  - Pneumonia [None]
  - Hypoxia [None]
  - Tachycardia [None]
  - Fatigue [None]
  - Interstitial lung disease [None]

NARRATIVE: CASE EVENT DATE: 20170516
